FAERS Safety Report 21837834 (Version 4)
Quarter: 2023Q1

REPORT INFORMATION
  Report Type: Spontaneous
  Country: US (occurrence: US)
  Receive Date: 20230109
  Receipt Date: 20230206
  Transmission Date: 20230417
  Serious: Yes (Hospitalization)
  Sender: FDA-Public Use
  Company Number: US-PFIZER INC-202200581981

PATIENT
  Age: 41 Year
  Sex: Female
  Weight: 49.887 kg

DRUGS (5)
  1. BRAFTOVI [Suspect]
     Active Substance: ENCORAFENIB
     Indication: Benign neoplasm of optic nerve
     Dosage: 75 MG, DAILY
     Dates: start: 20220915
  2. BRAFTOVI [Suspect]
     Active Substance: ENCORAFENIB
     Indication: Brain neoplasm benign
  3. MEKTOVI [Suspect]
     Active Substance: BINIMETINIB
     Indication: Benign neoplasm of optic nerve
     Dosage: 15 MG, DAILY
     Dates: start: 20220915
  4. MEKTOVI [Suspect]
     Active Substance: BINIMETINIB
     Indication: Brain neoplasm benign
  5. LEVETIRACETAM [Concomitant]
     Active Substance: LEVETIRACETAM
     Dosage: 2000 MG, DAILY (4 TABLETS OF 500 MG DAILY)

REACTIONS (10)
  - Immunosuppression [Recovered/Resolved]
  - Herpes zoster [Recovered/Resolved]
  - Nausea [Recovered/Resolved]
  - Weight increased [Not Recovered/Not Resolved]
  - Scab [Recovering/Resolving]
  - Hordeolum [Unknown]
  - Nasopharyngitis [Recovered/Resolved]
  - Off label use [Unknown]
  - Abdominal pain [Unknown]
  - Diarrhoea [Unknown]

NARRATIVE: CASE EVENT DATE: 20220915
